FAERS Safety Report 22540883 (Version 1)
Quarter: 2023Q2

REPORT INFORMATION
  Report Type: Spontaneous
  Country: US (occurrence: None)
  Receive Date: 20230608
  Receipt Date: 20230608
  Transmission Date: 20230722
  Serious: Yes (Death)
  Sender: FDA-Public Use
  Company Number: None

PATIENT
  Age: 74 Year
  Sex: Female

DRUGS (4)
  1. ENOXAPARIN [Suspect]
     Active Substance: ENOXAPARIN
  2. APIXABAN [Suspect]
     Active Substance: APIXABAN
  3. WARFARIN [Suspect]
     Active Substance: WARFARIN
  4. MIDODRINE [Suspect]
     Active Substance: MIDODRINE

REACTIONS (10)
  - Atrial fibrillation [None]
  - Cardiac failure congestive [None]
  - Therapy interrupted [None]
  - Hypotension [None]
  - Agonal respiration [None]
  - Unresponsive to stimuli [None]
  - Cardio-respiratory arrest [None]
  - Hypoglycaemia [None]
  - Haemoglobin decreased [None]
  - Abdominal wall haematoma [None]

NARRATIVE: CASE EVENT DATE: 20230117
